FAERS Safety Report 21779546 (Version 2)
Quarter: 2023Q1

REPORT INFORMATION
  Report Type: Spontaneous
  Country: US (occurrence: US)
  Receive Date: 20221226
  Receipt Date: 20230201
  Transmission Date: 20230418
  Serious: No
  Sender: FDA-Public Use
  Company Number: US-BRISTOL-MYERS SQUIBB COMPANY-2022-158707

PATIENT
  Age: 75 Year
  Sex: Male
  Weight: 52.61 kg

DRUGS (1)
  1. REVLIMID [Suspect]
     Active Substance: LENALIDOMIDE
     Indication: Plasma cell myeloma
     Dosage: FREQ: 21
     Route: 048

REACTIONS (4)
  - Inappropriate schedule of product administration [Unknown]
  - Muscular weakness [Unknown]
  - Fatigue [Unknown]
  - Decreased appetite [Unknown]
